FAERS Safety Report 10080114 (Version 1)
Quarter: 2014Q2

REPORT INFORMATION
  Report Type: Spontaneous
  Country: DK (occurrence: FR)
  Receive Date: 20140415
  Receipt Date: 20140415
  Transmission Date: 20141212
  Serious: Yes (Hospitalization)
  Sender: FDA-Public Use
  Company Number: FR-FRI-1000066503

PATIENT
  Age: 32 Year
  Sex: Male

DRUGS (6)
  1. ESCITALOPRAM [Suspect]
     Route: 048
     Dates: end: 20130417
  2. ESCITALOPRAM [Suspect]
     Dosage: OVERDOSE: 11 TABLETS
     Route: 048
     Dates: start: 20130418, end: 20130418
  3. METHADONE AP HP [Suspect]
     Route: 048
     Dates: end: 20130417
  4. METHADONE AP HP [Suspect]
     Dosage: OVERDOSE: 3 DF
     Route: 048
     Dates: start: 20130418, end: 20130418
  5. XANAX [Suspect]
     Route: 048
     Dates: end: 20130417
  6. XANAX [Suspect]
     Dosage: OVERDOSE: UNKNOWN
     Route: 048
     Dates: start: 20130418, end: 20130418

REACTIONS (3)
  - Coma [Recovered/Resolved]
  - Intentional overdose [Recovered/Resolved]
  - Drug dispensing error [Recovered/Resolved]
